FAERS Safety Report 4432341-6 (Version None)
Quarter: 2004Q3

REPORT INFORMATION
  Report Type: 
  Country: None (occurrence: None)
  Receive Date: 20040820
  Receipt Date: 20040810
  Transmission Date: 20050211
  Serious: No
  Sender: FDA-Public Use
  Company Number: 2003SE02808

PATIENT
  Age: 58 Year
  Sex: Female

DRUGS (4)
  1. OMEPRAZOLE [Suspect]
     Indication: GASTRIC POLYPS
     Dosage: 20 MG QD PO
     Route: 048
     Dates: start: 20020819, end: 20030414
  2. OMEPRAZOLE [Suspect]
     Indication: REFLUX OESOPHAGITIS
     Dosage: 20 MG QD PO
     Route: 048
     Dates: start: 20020819, end: 20030414
  3. MUCOSTA [Concomitant]
  4. UNIPHYL [Concomitant]

REACTIONS (2)
  - DYSPNOEA [None]
  - HAEMOLYTIC ANAEMIA [None]
